FAERS Safety Report 5521591-3 (Version None)
Quarter: 2007Q4

REPORT INFORMATION
  Report Type: 
  Country: None (occurrence: None)
  Receive Date: 20071116
  Receipt Date: 20071102
  Transmission Date: 20080405
  Serious: Yes (Hospitalization)
  Sender: FDA-Public Use
  Company Number: 310002L07TWN

PATIENT
  Age: 33 Year
  Sex: Female

DRUGS (6)
  1. GONAL-F [Suspect]
     Indication: OVULATION INDUCTION
     Dosage: 75 IU
  2. PERGONAL [Suspect]
     Indication: OVULATION INDUCTION
     Dosage: 150 IU
  3. CHORIONIC GONADORTOPIN INJ [Suspect]
     Indication: OVULATION INDUCTION
     Dosage: 10000 IU, ONCE
  4. CHORIONIC GONADTROPIN [Suspect]
     Indication: OVULATION INDUCTION
     Dosage: INTRAMUSCULAR
     Route: 030
  5. PROGESTERONE [Suspect]
     Dosage: INTRAMUSCULAR
     Route: 030
  6. LEUPROLIDE ACETATE [Concomitant]

REACTIONS (5)
  - DRUG EXPOSURE DURING PREGNANCY [None]
  - ECTOPIC PREGNANCY [None]
  - ENDOMETRIOSIS [None]
  - INTESTINAL ADHESION LYSIS [None]
  - METRORRHAGIA [None]
